FAERS Safety Report 8203014-9 (Version None)
Quarter: 2012Q1

REPORT INFORMATION
  Report Type: 
  Country: None (occurrence: None)
  Receive Date: 20120312
  Receipt Date: 20120227
  Transmission Date: 20120608
  Serious: Yes (Death, Hospitalization)
  Sender: FDA-Public Use
  Company Number: FR-CELGENEUS-056-21880-12011897

PATIENT
  Sex: Female

DRUGS (27)
  1. CYCLOPHOSPHAMIDE [Concomitant]
     Route: 065
     Dates: start: 20111209
  2. ALUMINUM HYDROXIDE AND MAGNESIUM TRISILICATE [Concomitant]
     Route: 048
     Dates: start: 20120101
  3. BORTEZOMIB [Suspect]
     Route: 050
     Dates: start: 20111114
  4. CHLORPROMAZINE HCL [Concomitant]
     Indication: INFECTION PROPHYLAXIS
     Route: 041
     Dates: start: 20110113
  5. VANCOMYCIN [Concomitant]
     Indication: INFECTION PROPHYLAXIS
     Dosage: 1.5 GRAM
     Route: 041
     Dates: start: 20120113
  6. CIPROFLOXACIN [Concomitant]
     Indication: INFECTION PROPHYLAXIS
     Dosage: 800 MILLIGRAM
     Route: 041
     Dates: start: 20120113
  7. PAROEX [Concomitant]
     Dosage: 4 OTHER
     Route: 048
     Dates: start: 20120101
  8. GRANOCYTES [Concomitant]
     Indication: NEUTROPENIA
     Dosage: 6 MILLIGRAM
     Route: 058
     Dates: start: 20120108, end: 20120108
  9. REVLIMID [Suspect]
     Route: 048
     Dates: start: 20111114
  10. XANAX [Concomitant]
     Indication: ANXIETY
     Dosage: .5 MILLIGRAM
     Route: 048
     Dates: start: 20120101
  11. ZOVIRAX [Concomitant]
     Indication: INFECTION PROPHYLAXIS
     Dosage: 750 MILLIGRAM
     Route: 041
     Dates: start: 20120113
  12. IMIPENEM AND CILASTATIN SODIUM [Concomitant]
     Indication: INFECTION PROPHYLAXIS
     Dosage: 1500 MILLIGRAM
     Route: 041
     Dates: start: 20120113
  13. MORPHINE [Concomitant]
     Route: 041
     Dates: start: 20120101
  14. PROGESTERONE [Concomitant]
     Indication: MENOPAUSE
     Dosage: 1 OTHER
     Route: 048
     Dates: start: 20030101
  15. REVLIMID [Suspect]
     Indication: MULTIPLE MYELOMA
     Route: 048
     Dates: start: 20110923
  16. BORTEZOMIB [Suspect]
     Indication: MULTIPLE MYELOMA
     Route: 050
     Dates: start: 20110923
  17. DEXAMETHASONE [Suspect]
     Indication: MULTIPLE MYELOMA
     Route: 065
     Dates: start: 20110923
  18. SPASFON [Concomitant]
     Dosage: 160 MILLIGRAM
     Route: 041
     Dates: start: 20120101
  19. DEXAMETHASONE [Suspect]
     Route: 065
     Dates: start: 20111115
  20. MORPHINE [Concomitant]
     Indication: PAIN PROPHYLAXIS
     Dosage: 3MG/H
     Route: 041
     Dates: start: 20120101
  21. THAOR [Concomitant]
     Indication: HYPERTENSION
     Dosage: 10 MILLIGRAM
     Route: 048
     Dates: start: 20000101
  22. TIORFAN [Concomitant]
     Dosage: 6
     Route: 048
     Dates: start: 20120101
  23. GAVISCON [Concomitant]
     Dosage: 2
     Route: 048
     Dates: start: 20120101
  24. LOVENOX [Concomitant]
     Indication: THROMBOSIS PROPHYLAXIS
     Dosage: .4 MILLIGRAM/MILLILITERS
     Route: 058
     Dates: start: 20110923
  25. NEXIUM [Concomitant]
     Dosage: 40 MILLIGRAM
     Route: 041
     Dates: start: 20120101
  26. ZOFRAN [Concomitant]
     Indication: GASTRITIS PROPHYLAXIS
     Dosage: 1
     Route: 041
     Dates: start: 20120101
  27. POTASSIUM CHLORIDE [Concomitant]
     Route: 041
     Dates: start: 20120101

REACTIONS (1)
  - ACUTE RESPIRATORY DISTRESS SYNDROME [None]
